FAERS Safety Report 25250732 (Version 1)
Quarter: 2025Q2

REPORT INFORMATION
  Report Type: Spontaneous
  Country: DE (occurrence: DE)
  Receive Date: 20250429
  Receipt Date: 20250429
  Transmission Date: 20250717
  Serious: Yes (Other)
  Sender: PFIZER
  Company Number: DE-PFIZER INC-PV202500049760

PATIENT
  Age: 48 Year
  Sex: Female

DRUGS (1)
  1. RITUXIMAB [Suspect]
     Active Substance: RITUXIMAB
     Indication: Systemic scleroderma

REACTIONS (6)
  - Cytokine release syndrome [Unknown]
  - Hypogammaglobulinaemia [Unknown]
  - Gastroenteritis [Unknown]
  - Drug ineffective for unapproved indication [Unknown]
  - Off label use [Unknown]
  - Nasopharyngitis [Unknown]
